FAERS Safety Report 10490974 (Version 1)
Quarter: 2014Q4

REPORT INFORMATION
  Report Type: Spontaneous
  Country: US (occurrence: US)
  Receive Date: 20141002
  Receipt Date: 20141002
  Transmission Date: 20150528
  Serious: Yes (Hospitalization, Other)
  Sender: FDA-Public Use
  Company Number: US-B.I. PHARMACEUTICALS,INC./RIDGEFIELD-2014-BI-46750BP

PATIENT
  Age: 76 Year
  Sex: Male
  Weight: 80.9 kg

DRUGS (1)
  1. PRADAXA [Suspect]
     Active Substance: DABIGATRAN ETEXILATE MESYLATE
     Indication: ATRIAL FIBRILLATION
     Dosage: 300 MG
     Route: 065
     Dates: start: 20130301, end: 20130314

REACTIONS (6)
  - Oesophageal ulcer [Unknown]
  - Gastrointestinal haemorrhage [Unknown]
  - Gastrointestinal arteriovenous malformation [Unknown]
  - Confusional state [Unknown]
  - Acute kidney injury [Unknown]
  - Hypovolaemic shock [Unknown]

NARRATIVE: CASE EVENT DATE: 201303
